FAERS Safety Report 8440093-8 (Version None)
Quarter: 2012Q2

REPORT INFORMATION
  Report Type: 
  Country: None (occurrence: None)
  Receive Date: 20120615
  Receipt Date: 20120607
  Transmission Date: 20120825
  Serious: Yes (Hospitalization)
  Sender: FDA-Public Use
  Company Number: ES-ELI_LILLY_AND_COMPANY-ES201206002456

PATIENT
  Sex: Female
  Weight: 61 kg

DRUGS (11)
  1. ENOXAPARIN SODIUM [Concomitant]
     Indication: THROMBOSIS PROPHYLAXIS
     Dosage: 40 MG, QD
     Route: 058
  2. OMEPRAZOLE [Concomitant]
     Dosage: 20 MG, QD
     Route: 048
  3. XALATAN [Concomitant]
     Indication: GLAUCOMA
     Dosage: 1 GT, QD
     Route: 048
  4. SIMVASTATIN [Concomitant]
     Indication: BLOOD CHOLESTEROL INCREASED
     Dosage: 20 MG, QD
     Route: 048
  5. FORTEO [Suspect]
     Dosage: 20 UG, QD
     Route: 058
     Dates: start: 20120202
  6. ACETAMINOPHEN [Concomitant]
     Indication: ANALGESIC THERAPY
     Dosage: 1 GR, EVERY 8 HRS
     Route: 048
  7. FORTEO [Suspect]
     Indication: OSTEOPOROSIS
     Dosage: 20 UG, QD
     Route: 058
     Dates: start: 20110923, end: 20111106
  8. SERTRALINA [Concomitant]
     Indication: DEPRESSION
     Dosage: 50 MG, QD
     Route: 048
  9. PLENDIL [Concomitant]
     Dosage: 5 MG, QD
     Route: 048
  10. ASPIRIN [Concomitant]
     Indication: ARRHYTHMIA
     Dosage: 1 DF, QD
     Route: 048
  11. ATENOLOL [Concomitant]
     Indication: ARRHYTHMIA
     Dosage: 1/2 50MG CAPSULE, BID
     Route: 048

REACTIONS (1)
  - DEVICE DISLOCATION [None]
